FAERS Safety Report 25811081 (Version 1)
Quarter: 2025Q3

REPORT INFORMATION
  Report Type: Spontaneous
  Country: US (occurrence: US)
  Receive Date: 20250917
  Receipt Date: 20250917
  Transmission Date: 20251021
  Serious: No
  Sender: AUROBINDO
  Company Number: US-AUROBINDO-AUR-APL-2025-040465

PATIENT
  Age: 40 Year
  Sex: Female
  Weight: 71.21 kg

DRUGS (1)
  1. MONTELUKAST SODIUM [Suspect]
     Active Substance: MONTELUKAST SODIUM
     Indication: Asthma
     Dosage: UNK UNK, ONCE A DAY
     Route: 065
     Dates: start: 20250530

REACTIONS (3)
  - Illness [Unknown]
  - Product administration error [Unknown]
  - Product commingling [Unknown]
